FAERS Safety Report 8972857 (Version 1)
Quarter: 2012Q4

REPORT INFORMATION
  Report Type: 
  Country: JP (occurrence: JP)
  Receive Date: 20121219
  Receipt Date: 20121219
  Transmission Date: 20130627
  Serious: Yes (Other)
  Sender: FDA-Public Use
  Company Number: JP-ASTELLAS-2012JP011747

PATIENT
  Age: 8 Month
  Sex: Male

DRUGS (7)
  1. PROGRAF [Suspect]
     Indication: PROPHYLAXIS AGAINST GRAFT VERSUS HOST DISEASE
     Dosage: UNK
     Route: 065
  2. METHOTREXATE [Concomitant]
     Indication: PROPHYLAXIS AGAINST GRAFT VERSUS HOST DISEASE
     Dosage: UNK
     Route: 065
  3. FLUDARABINE [Concomitant]
     Indication: CORD BLOOD TRANSPLANT THERAPY
     Dosage: 120 mg/m2, Unknown/D
     Route: 065
  4. BUSULFAN [Concomitant]
     Indication: CORD BLOOD TRANSPLANT THERAPY
     Dosage: 6.4 mg/kg, Unknown/D
     Route: 065
  5. L-PAM                              /00006401/ [Concomitant]
     Indication: CORD BLOOD TRANSPLANT THERAPY
     Dosage: 180 mg/m2, Unknown/D
     Route: 065
  6. 6-MP [Concomitant]
     Indication: CHEMOTHERAPY
     Dosage: 50 mg/m2, Unknown/D
     Route: 065
  7. ARA-C [Concomitant]
     Indication: CHEMOTHERAPY
     Dosage: 40 mg/m2, Unknown/D
     Route: 065

REACTIONS (2)
  - Drug ineffective [Unknown]
  - Acute graft versus host disease [Unknown]
